FAERS Safety Report 10850848 (Version 1)
Quarter: 2015Q1

REPORT INFORMATION
  Report Type: Spontaneous
  Country: US (occurrence: US)
  Receive Date: 20150222
  Receipt Date: 20150222
  Transmission Date: 20150721
  Serious: No
  Sender: FDA-Public Use
  Company Number: US-ALLERGAN-1405306US

PATIENT
  Age: 79 Year
  Sex: Female

DRUGS (9)
  1. ASA [Concomitant]
     Active Substance: ASPIRIN
     Indication: ANTICOAGULANT THERAPY
     Dosage: 81 MG, UNK
     Dates: start: 2009
  2. KLONOPIN [Concomitant]
     Active Substance: CLONAZEPAM
     Indication: MUSCLE SPASMS
     Dosage: 0.25 MG, UNK
     Dates: start: 2000
  3. NORVASC [Concomitant]
     Active Substance: AMLODIPINE BESYLATE
     Indication: LEFT VENTRICULAR FAILURE
     Dosage: UNK
     Dates: start: 20140303
  4. ATENOLOL. [Concomitant]
     Active Substance: ATENOLOL
     Indication: PRODUCT USED FOR UNKNOWN INDICATION
     Dosage: 25 MG, UNK
  5. BOTOX [Suspect]
     Active Substance: ONABOTULINUMTOXINA
     Dosage: 4 UNITS, SINGLE
     Route: 030
     Dates: start: 20140217, end: 20140217
  6. BOTOX [Suspect]
     Active Substance: ONABOTULINUMTOXINA
     Dosage: 6 UNITS, SINGLE
     Route: 030
     Dates: start: 20140217, end: 20140217
  7. THYROID MEDICATION NOS [Concomitant]
     Indication: THYROID DISORDER
     Dosage: 25 MG, UNK
  8. BOTOX [Suspect]
     Active Substance: ONABOTULINUMTOXINA
     Indication: BLEPHAROSPASM
     Dosage: 40 UNITS, SINGLE
     Route: 030
     Dates: start: 20140217, end: 20140217
  9. DYAZIDE [Concomitant]
     Active Substance: HYDROCHLOROTHIAZIDE\TRIAMTERENE
     Indication: PRODUCT USED FOR UNKNOWN INDICATION

REACTIONS (8)
  - Rash erythematous [Unknown]
  - Pain [Unknown]
  - Fatigue [Unknown]
  - Insomnia [Recovered/Resolved]
  - Nausea [Recovering/Resolving]
  - Blood pressure increased [Unknown]
  - Asthenia [Unknown]
  - Headache [Recovered/Resolved]

NARRATIVE: CASE EVENT DATE: 20140217
